FAERS Safety Report 21695706 (Version 1)
Quarter: 2022Q4

REPORT INFORMATION
  Report Type: Report from Study
  Country: US (occurrence: US)
  Receive Date: 20221207
  Receipt Date: 20221207
  Transmission Date: 20230112
  Serious: No
  Sender: FDA-Public Use
  Company Number: US-ABBVIE-4222663

PATIENT
  Sex: Female
  Weight: 61.234 kg

DRUGS (1)
  1. CREON [Suspect]
     Active Substance: PANCRELIPASE AMYLASE\PANCRELIPASE LIPASE\PANCRELIPASE PROTEASE
     Indication: Anal incontinence
     Dosage: FIRST ADMIN DATE: OCT 2022, TOOK TWO CAPSULES WITH EACH MEAL THREE TIMES DAILY AND ONE CAPSULE WI...
     Route: 048

REACTIONS (4)
  - Pyrexia [Recovered/Resolved]
  - Off label use [Not Recovered/Not Resolved]
  - Chills [Recovered/Resolved]
  - Weight increased [Unknown]

NARRATIVE: CASE EVENT DATE: 20220101
